FAERS Safety Report 22206315 (Version 1)
Quarter: 2023Q2

REPORT INFORMATION
  Report Type: Spontaneous
  Country: GB (occurrence: GB)
  Receive Date: 20230413
  Receipt Date: 20230413
  Transmission Date: 20230721
  Serious: Yes (Other)
  Sender: FDA-Public Use
  Company Number: GB-JNJFOC-20190619896

PATIENT
  Sex: Female

DRUGS (2)
  1. DIMETHICONE\LOPERAMIDE HYDROCHLORIDE [Suspect]
     Active Substance: DIMETHICONE\LOPERAMIDE HYDROCHLORIDE
     Indication: Diverticulitis
     Route: 065
  2. IMODIUM [Suspect]
     Active Substance: LOPERAMIDE HYDROCHLORIDE
     Indication: Diverticulitis
     Route: 065

REACTIONS (5)
  - Syncope [Unknown]
  - Illness [Unknown]
  - Dizziness [Unknown]
  - Product use in unapproved indication [Unknown]
  - Off label use [Unknown]
